FAERS Safety Report 19153824 (Version 2)
Quarter: 2021Q2

REPORT INFORMATION
  Report Type: Report from Study
  Country: US (occurrence: US)
  Receive Date: 20210419
  Receipt Date: 20210513
  Transmission Date: 20210717
  Serious: Yes (Other)
  Sender: FDA-Public Use
  Company Number: US-EMD SERONO-9064201

PATIENT
  Age: 41 Year
  Sex: Male

DRUGS (1)
  1. SEROSTIM [Suspect]
     Active Substance: SOMATROPIN
     Indication: CACHEXIA
     Dosage: 7 VIAL PACK
     Route: 058
     Dates: start: 20181126

REACTIONS (6)
  - Injection site pain [Unknown]
  - Product preparation issue [Unknown]
  - Limb injury [Recovering/Resolving]
  - Facial wasting [Unknown]
  - Abnormal loss of weight [Unknown]
  - Accident [Unknown]

NARRATIVE: CASE EVENT DATE: 201811
